FAERS Safety Report 25526546 (Version 1)
Quarter: 2025Q3

REPORT INFORMATION
  Report Type: Report from Study
  Country: US (occurrence: US)
  Receive Date: 20250707
  Receipt Date: 20250707
  Transmission Date: 20251020
  Serious: Yes (Other)
  Sender: MALLINCKRODT
  Company Number: US-MALLINCKRODT-MNK202405299

PATIENT
  Sex: Male
  Weight: 217 kg

DRUGS (5)
  1. CORTICOTROPIN [Suspect]
     Active Substance: CORTICOTROPIN
     Indication: Polymyositis
     Route: 058
     Dates: start: 20240425, end: 2024
  2. CORTICOTROPIN [Suspect]
     Active Substance: CORTICOTROPIN
     Indication: Polymyositis
     Route: 058
     Dates: start: 2024, end: 2024
  3. CORTICOTROPIN [Suspect]
     Active Substance: CORTICOTROPIN
     Indication: Inclusion body myositis
     Route: 058
     Dates: start: 2024, end: 2024
  4. CORTICOTROPIN [Suspect]
     Active Substance: CORTICOTROPIN
     Route: 058
     Dates: start: 2024
  5. ALLOPURINOL [Concomitant]
     Active Substance: ALLOPURINOL

REACTIONS (13)
  - Cataract [Not Recovered/Not Resolved]
  - Panic attack [Unknown]
  - Pollakiuria [Not Recovered/Not Resolved]
  - Muscle swelling [Not Recovered/Not Resolved]
  - Laboratory test abnormal [Not Recovered/Not Resolved]
  - Musculoskeletal stiffness [Not Recovered/Not Resolved]
  - Irritability [Unknown]
  - Depression [Not Recovered/Not Resolved]
  - Swelling [Not Recovered/Not Resolved]
  - Insomnia [Unknown]
  - Muscular weakness [Unknown]
  - Anger [Unknown]
  - Injection site discolouration [Not Recovered/Not Resolved]

NARRATIVE: CASE EVENT DATE: 20240101
